FAERS Safety Report 6480656-2 (Version None)
Quarter: 2009Q4

REPORT INFORMATION
  Report Type: 
  Country: None (occurrence: None)
  Receive Date: 20091202
  Receipt Date: 20091119
  Transmission Date: 20100525
  Serious: Yes (Other)
  Sender: FDA-Public Use
  Company Number: 1-20776807

PATIENT
  Sex: Male
  Weight: 38.5557 kg

DRUGS (5)
  1. CLONIDINE HCL [Suspect]
     Indication: SLEEP DISORDER
     Dosage: 0.1 MG, ONCE , ORAL
     Route: 048
     Dates: start: 20091115, end: 20091115
  2. SINGULAIR [Suspect]
  3. CONCERTA [Suspect]
  4. ZYRTEC [Suspect]
  5. ALBUTEROL SULATE [Suspect]

REACTIONS (2)
  - HYPERSENSITIVITY [None]
  - TRISMUS [None]
